FAERS Safety Report 7413611-6 (Version None)
Quarter: 2011Q2

REPORT INFORMATION
  Report Type: 
  Country: None (occurrence: None)
  Receive Date: 20110413
  Receipt Date: 20110407
  Transmission Date: 20111010
  Serious: Yes (Other)
  Sender: FDA-Public Use
  Company Number: JP-GENZYME-FLUD-1001042

PATIENT
  Age: 65 Year

DRUGS (7)
  1. FLUDARA [Suspect]
     Indication: CORD BLOOD TRANSPLANT THERAPY
  2. TACROLIMUS [Concomitant]
     Indication: PROPHYLAXIS AGAINST GRAFT VERSUS HOST DISEASE
     Route: 065
  3. FLUDARA [Suspect]
     Indication: APLASTIC ANAEMIA
     Dosage: 25 MG/M2, QD
     Route: 065
  4. MELPHALAN HYDROCHLORIDE [Suspect]
     Indication: CORD BLOOD TRANSPLANT THERAPY
  5. MELPHALAN HYDROCHLORIDE [Suspect]
     Indication: APLASTIC ANAEMIA
     Dosage: 40 MG/M2, QD
     Route: 065
  6. MYCOPHENOLATE MOFETIL [Concomitant]
     Indication: PROPHYLAXIS AGAINST GRAFT VERSUS HOST DISEASE
     Route: 065
  7. CYCLOSPORINE [Suspect]
     Indication: IMMUNOSUPPRESSANT DRUG THERAPY
     Route: 065

REACTIONS (2)
  - ACUTE GRAFT VERSUS HOST DISEASE IN SKIN [None]
  - ACUTE GRAFT VERSUS HOST DISEASE [None]
